FAERS Safety Report 20514051 (Version 1)
Quarter: 2022Q1

REPORT INFORMATION
  Report Type: Spontaneous
  Country: None (occurrence: NL)
  Receive Date: 20220224
  Receipt Date: 20220224
  Transmission Date: 20220423
  Serious: Yes (Hospitalization, Other)
  Sender: FDA-Public Use
  Company Number: NL-Nova Laboratories Limited-2126194

PATIENT
  Age: 4 Year
  Sex: Female
  Weight: 16.40 kg

DRUGS (12)
  1. PURIXAN [Suspect]
     Active Substance: MERCAPTOPURINE
     Indication: Product used for unknown indication
     Dates: start: 20211210, end: 20211217
  2. METHOTREXATE [Suspect]
     Active Substance: METHOTREXATE
     Route: 048
     Dates: start: 20211210, end: 20211217
  3. VINCRISTINE [Suspect]
     Active Substance: VINCRISTINE
     Dates: start: 20211202
  4. DEXAMETHASONE [Suspect]
     Active Substance: DEXAMETHASONE
     Dates: start: 20211202
  5. TRAMADOL HYDROCHLORIDE [Concomitant]
     Active Substance: TRAMADOL HYDROCHLORIDE
     Dates: start: 20210912
  6. LIDOCAINE [Concomitant]
     Active Substance: LIDOCAINE
     Dates: start: 20210912
  7. ONDANSETRON [Concomitant]
     Active Substance: ONDANSETRON
     Dates: start: 20210912
  8. INOTUZUMAB OZOGAMICIN [Concomitant]
     Active Substance: INOTUZUMAB OZOGAMICIN
     Dates: start: 20211011
  9. TRAMADOL HYDROCHLORIDE [Concomitant]
     Active Substance: TRAMADOL HYDROCHLORIDE
  10. ACETAMINOPHEN [Concomitant]
     Active Substance: ACETAMINOPHEN
     Dates: start: 20210912
  11. POLYETHYLENE GLYCOLS [Concomitant]
     Active Substance: POLYETHYLENE GLYCOLS
     Dates: start: 20210912
  12. XYLOMETAZOLINE [Concomitant]
     Active Substance: XYLOMETAZOLINE
     Dates: start: 20211029, end: 20211230

REACTIONS (2)
  - Staphylococcus test positive [Unknown]
  - Device related infection [Recovered/Resolved]

NARRATIVE: CASE EVENT DATE: 20211201
